FAERS Safety Report 8862378 (Version 1)
Quarter: 2012Q4

REPORT INFORMATION
  Report Type: 
  Country: JP (occurrence: JP)
  Receive Date: 20121026
  Receipt Date: 20121026
  Transmission Date: 20130627
  Serious: Yes (Death)
  Sender: FDA-Public Use
  Company Number: JP-AMGEN-JPNSP2012065092

PATIENT
  Age: 76 Year
  Sex: Male
  Weight: 57 kg

DRUGS (10)
  1. VECTIBIX [Suspect]
     Indication: COLORECTAL CANCER
     Dosage: 384 mg, q2wk
     Route: 042
     Dates: start: 20120127, end: 20120127
  2. VECTIBIX [Suspect]
     Dosage: 380 mg, q2wk
     Route: 042
     Dates: start: 20120210, end: 20120210
  3. VECTIBIX [Suspect]
     Dosage: UNK
     Route: 042
     Dates: start: 20120301
  4. ELPLAT [Suspect]
     Indication: COLORECTAL CANCER
     Dosage: 140 mg, UNK
     Route: 042
     Dates: start: 20120127
  5. 5-FU [Suspect]
     Indication: COLORECTAL CANCER
     Dosage: 2666 mg, UNK
     Route: 042
     Dates: start: 20120127
  6. DECADRON [Concomitant]
     Indication: PROPHYLAXIS
     Dosage: 3.3 mg, UNK
     Route: 042
     Dates: start: 20120127
  7. PRIMPERAN [Concomitant]
     Indication: PROPHYLAXIS OF NAUSEA AND VOMITING
     Dosage: 10 mg, UNK
     Route: 042
     Dates: start: 20120127
  8. CHLOR TRIMETON [Concomitant]
     Indication: PROPHYLAXIS
     Dosage: 10 mg, UNK
     Route: 042
     Dates: start: 20120127
  9. KYTRIL [Concomitant]
     Indication: PROPHYLAXIS OF NAUSEA AND VOMITING
     Dosage: 3 mg, UNK
     Route: 042
     Dates: start: 20120127
  10. LEVOFOLINATE [Concomitant]
     Indication: COLORECTAL CANCER
     Dosage: 166 mg, UNK
     Route: 042
     Dates: start: 20120127

REACTIONS (2)
  - Cerebral haemorrhage [Fatal]
  - Neutrophil count decreased [Recovering/Resolving]
